FAERS Safety Report 14815481 (Version 4)
Quarter: 2019Q1

REPORT INFORMATION
  Report Type: Report from Study
  Country: DE (occurrence: DE)
  Receive Date: 20180426
  Receipt Date: 20190214
  Transmission Date: 20190417
  Serious: Yes (Death, Hospitalization, Other)
  Sender: FDA-Public Use
  Company Number: DE-GILEAD-2015-0136801

PATIENT
  Age: 47 Year
  Sex: Male
  Weight: 71 kg

DRUGS (22)
  1. SOFOSBUVIR [Suspect]
     Active Substance: SOFOSBUVIR
     Indication: CHRONIC HEPATITIS C
     Dosage: 400 MG, QD
     Route: 048
     Dates: start: 20141230, end: 20150623
  2. NORFLOXACIN [Concomitant]
     Active Substance: NORFLOXACIN
     Dosage: UNK
     Route: 065
  3. NORFLOXACIN [Concomitant]
     Active Substance: NORFLOXACIN
     Dosage: UNK
     Route: 065
     Dates: start: 20141219
  4. DACLATASVIR. [Suspect]
     Active Substance: DACLATASVIR
     Indication: CHRONIC HEPATITIS C
     Dosage: 60 MG, QD
     Route: 048
     Dates: start: 20141230, end: 20150623
  5. TILIDINE [Concomitant]
     Active Substance: TILIDINE
     Dosage: UNK
     Route: 065
     Dates: start: 20141219
  6. PANTOPRAZOLE [Concomitant]
     Active Substance: PANTOPRAZOLE
     Dosage: UNK
  7. PANTOPRAZOLE [Concomitant]
     Active Substance: PANTOPRAZOLE
     Dosage: UNK
     Route: 065
  8. SPIROBETA [Concomitant]
     Active Substance: SPIRONOLACTONE
     Dosage: UNK
     Route: 065
  9. DOXEPIN [Concomitant]
     Active Substance: DOXEPIN
     Dosage: UNK
  10. TILIDINE [Concomitant]
     Active Substance: TILIDINE
     Dosage: UNK
     Route: 065
  11. RIBAVIRIN. [Suspect]
     Active Substance: RIBAVIRIN
     Indication: CHRONIC HEPATITIS C
     Dosage: 600 MG, QD
     Route: 048
     Dates: start: 20141230, end: 20150218
  12. TILIDINE [Concomitant]
     Active Substance: TILIDINE
     Dosage: UNK
  13. PANTOPRAZOLE [Concomitant]
     Active Substance: PANTOPRAZOLE
     Dosage: UNK
     Route: 065
     Dates: start: 20141208
  14. METAMIZOLE [Concomitant]
     Active Substance: METAMIZOLE
     Dosage: UNK
  15. NORFLOXACIN [Concomitant]
     Active Substance: NORFLOXACIN
     Dosage: UNK
  16. DOXEPIN [Concomitant]
     Active Substance: DOXEPIN
     Dosage: UNK
     Route: 065
  17. SPIROBETA [Concomitant]
     Active Substance: SPIRONOLACTONE
     Dosage: UNK
     Route: 065
  18. RIBAVIRIN. [Suspect]
     Active Substance: RIBAVIRIN
     Dosage: 800 MG, QD
     Route: 048
     Dates: start: 20150219, end: 20150623
  19. DOXEPIN [Concomitant]
     Active Substance: DOXEPIN
     Dosage: UNK
     Route: 065
     Dates: start: 20150810
  20. METAMIZOLE [Concomitant]
     Active Substance: METAMIZOLE
     Dosage: UNK
     Route: 065
  21. METAMIZOLE [Concomitant]
     Active Substance: METAMIZOLE
     Dosage: UNK
     Route: 065
     Dates: start: 20141216
  22. SPIROBETA [Concomitant]
     Active Substance: SPIRONOLACTONE
     Dosage: UNK
     Route: 065
     Dates: start: 20141219

REACTIONS (17)
  - Intracranial aneurysm [Fatal]
  - Nausea [Fatal]
  - Vomiting [Fatal]
  - Headache [Fatal]
  - Cerebral haemorrhage [Fatal]
  - Gastrooesophageal reflux disease [Fatal]
  - Gastritis [Fatal]
  - Dizziness [Fatal]
  - Myalgia [Fatal]
  - Hepatic failure [Fatal]
  - Alcohol abuse [Fatal]
  - Hydrocholecystis [Fatal]
  - Pruritus [Fatal]
  - Abdominal pain upper [Fatal]
  - Fatigue [Fatal]
  - Ear pain [Fatal]
  - Product dose omission [Fatal]

NARRATIVE: CASE EVENT DATE: 20150113
